FAERS Safety Report 8375937-1 (Version None)
Quarter: 2012Q2

REPORT INFORMATION
  Report Type: 
  Country: None (occurrence: None)
  Receive Date: 20120522
  Receipt Date: 20120511
  Transmission Date: 20120825
  Serious: Yes (Other)
  Sender: FDA-Public Use
  Company Number: FR-BRISTOL-MYERS SQUIBB COMPANY-16594202

PATIENT
  Age: 43 Year
  Sex: Male

DRUGS (2)
  1. REYATAZ [Suspect]
     Indication: HIV INFECTION
     Route: 048
     Dates: start: 20091115, end: 20110127
  2. ABACAVIR SULFATE/LAMIVUDINE [Suspect]
     Indication: HIV INFECTION
     Dosage: 1DF= 600MG/300 MG  INTP ON 27JAN11, RESTARTED 15JUL11.
     Route: 048
     Dates: start: 20091115

REACTIONS (3)
  - LIPASE INCREASED [None]
  - AMYLASE INCREASED [None]
  - VOMITING [None]
